FAERS Safety Report 12575239 (Version 1)
Quarter: 2016Q3

REPORT INFORMATION
  Report Type: Report from Study
  Country: CA (occurrence: CA)
  Receive Date: 20160720
  Receipt Date: 20160720
  Transmission Date: 20161109
  Serious: Yes (Other)
  Sender: FDA-Public Use
  Company Number: CA-JNJFOC-20160713235

PATIENT
  Age: 51 Year
  Sex: Male
  Weight: 78.9 kg

DRUGS (1)
  1. REMICADE [Suspect]
     Active Substance: INFLIXIMAB
     Indication: CROHN^S DISEASE
     Route: 042
     Dates: start: 2013

REACTIONS (2)
  - Abscess [Recovered/Resolved]
  - Enterostomy [Unknown]

NARRATIVE: CASE EVENT DATE: 20160601
